FAERS Safety Report 14690183 (Version 1)
Quarter: 2018Q1

REPORT INFORMATION
  Report Type: Spontaneous
  Country: FR (occurrence: FR)
  Receive Date: 20180328
  Receipt Date: 20180328
  Transmission Date: 20180509
  Serious: Yes (Hospitalization, Other)
  Sender: FDA-Public Use
  Company Number: FR-PFIZER INC-2018121243

PATIENT
  Age: 67 Year
  Sex: Male

DRUGS (2)
  1. DALACINE [Suspect]
     Active Substance: CLINDAMYCIN HYDROCHLORIDE
     Indication: OSTEITIS
     Dosage: 1800 MG, 1X/DAY
     Route: 048
     Dates: start: 20180208, end: 20180220
  2. ACIDE FUSIDIQUE [Suspect]
     Active Substance: FUSIDIC ACID
     Indication: OSTEITIS
     Dosage: 1500 MG, 1X/DAY
     Route: 048
     Dates: start: 20180208, end: 20180220

REACTIONS (4)
  - Rash [Recovered/Resolved]
  - Enanthema [Recovered/Resolved]
  - Agranulocytosis [Recovering/Resolving]
  - Thrombocytopenia [Recovering/Resolving]

NARRATIVE: CASE EVENT DATE: 201802
